FAERS Safety Report 24172149 (Version 3)
Quarter: 2025Q1

REPORT INFORMATION
  Report Type: Spontaneous
  Country: CA (occurrence: CA)
  Receive Date: 20240805
  Receipt Date: 20250203
  Transmission Date: 20250409
  Serious: No
  Sender: CELLTRION
  Company Number: CA-CELLTRION INC.-2024CA003914

PATIENT

DRUGS (5)
  1. YUFLYMA [Suspect]
     Active Substance: ADALIMUMAB-AATY
     Indication: Crohn^s disease
     Dosage: 80 MG EVERY 2 WEEKS/80 MG EVERY 14 DAYS
     Route: 058
     Dates: start: 20230517
  2. YUFLYMA [Suspect]
     Active Substance: ADALIMUMAB-AATY
     Dosage: 80 MG EVERY 2 WEEKS
     Route: 058
     Dates: start: 20240124
  3. YUFLYMA [Suspect]
     Active Substance: ADALIMUMAB-AATY
     Dosage: 80 MG EVERY 2 WEEKS
     Route: 058
     Dates: start: 20240814
  4. YUFLYMA [Suspect]
     Active Substance: ADALIMUMAB-AATY
     Dosage: 80 MG EVERY 14 DAYS
     Route: 058
     Dates: start: 20240827
  5. VENLAFAXINE [Concomitant]
     Active Substance: VENLAFAXINE HYDROCHLORIDE

REACTIONS (5)
  - Therapeutic response shortened [Unknown]
  - Therapy interrupted [Unknown]
  - Therapy interrupted [Unknown]
  - Product dose omission issue [Not Recovered/Not Resolved]
  - Inappropriate schedule of product administration [Unknown]
